FAERS Safety Report 13139686 (Version 1)
Quarter: 2017Q1

REPORT INFORMATION
  Report Type: Spontaneous
  Country: US (occurrence: US)
  Receive Date: 20170123
  Receipt Date: 20170123
  Transmission Date: 20170428
  Serious: No
  Sender: FDA-Public Use
  Company Number: US-ELI_LILLY_AND_COMPANY-US201701006632

PATIENT
  Sex: Male

DRUGS (2)
  1. HUMULIN R [Suspect]
     Active Substance: INSULIN HUMAN
     Indication: PRODUCT USED FOR UNKNOWN INDICATION
     Dosage: 200 U, BID
     Route: 065
     Dates: start: 201605
  2. HUMULIN R [Suspect]
     Active Substance: INSULIN HUMAN
     Dosage: 200 U, BID
     Route: 065

REACTIONS (3)
  - Blood albumin increased [Not Recovered/Not Resolved]
  - Oedema peripheral [Recovering/Resolving]
  - Renal impairment [Not Recovered/Not Resolved]

NARRATIVE: CASE EVENT DATE: 201607
